FAERS Safety Report 8292371-3 (Version None)
Quarter: 2012Q2

REPORT INFORMATION
  Report Type: 
  Country: None (occurrence: None)
  Receive Date: 20120417
  Receipt Date: 20120412
  Transmission Date: 20120825
  Serious: Yes (Other)
  Sender: FDA-Public Use
  Company Number: CHPA2012US006489

PATIENT
  Age: 63 Year
  Sex: Female

DRUGS (5)
  1. PRILOSEC [Concomitant]
  2. NEXIUM [Suspect]
     Dosage: UNK, UNK
     Route: 065
  3. PREVACID 24 HR [Suspect]
     Indication: IRRITABLE BOWEL SYNDROME
     Dosage: 15 MG, QD
     Route: 048
     Dates: start: 20100801
  4. BOTOX [Concomitant]
     Indication: TORTICOLLIS
  5. CLOZAPINE [Concomitant]
     Indication: TORTICOLLIS
     Dosage: 1 MG, QHS

REACTIONS (5)
  - OFF LABEL USE [None]
  - THERAPEUTIC RESPONSE UNEXPECTED [None]
  - INCORRECT DRUG ADMINISTRATION DURATION [None]
  - TORTICOLLIS [None]
  - CONCOMITANT DISEASE AGGRAVATED [None]
